FAERS Safety Report 8724409 (Version 2)
Quarter: 2012Q4

REPORT INFORMATION
  Report Type: 
  Country: US (occurrence: US)
  Receive Date: 20120815
  Receipt Date: 20120830
  Transmission Date: 20130627
  Serious: No
  Sender: FDA-Public Use
  Company Number: US-TEVA-353653USA

PATIENT
  Sex: Female
  Weight: 76.27 kg

DRUGS (4)
  1. PROAIR HFA [Suspect]
     Indication: ASTHMA
  2. ALBUTEROL [Concomitant]
     Dosage: every 4 hours
     Dates: start: 20120403
  3. ADVAIR [Concomitant]
     Dosage: twice a day
     Dates: start: 20120810
  4. FLUTICASONE [Concomitant]
     Dosage: twice a day
     Dates: start: 20120810

REACTIONS (3)
  - Asthma [Unknown]
  - Incorrect dose administered [Unknown]
  - Pregnancy [Unknown]
